FAERS Safety Report 6391760-1 (Version None)
Quarter: 2009Q4

REPORT INFORMATION
  Report Type: 
  Country: None (occurrence: None)
  Receive Date: 20091007
  Receipt Date: 20090814
  Transmission Date: 20100525
  Serious: No
  Sender: FDA-Public Use
  Company Number: US-BAYER-200930474NA

PATIENT
  Age: 37 Year
  Sex: Female

DRUGS (2)
  1. MIRENA [Suspect]
     Indication: CONTRACEPTION
     Dosage: CONTINUOUS
     Route: 015
     Dates: start: 20031101
  2. MIRENA [Suspect]
     Dosage: CONTINUOUS
     Route: 015
     Dates: start: 20081101

REACTIONS (5)
  - ABDOMINAL DISTENSION [None]
  - AFFECT LABILITY [None]
  - AMENORRHOEA [None]
  - EMOTIONAL DISORDER [None]
  - VAGINAL HAEMORRHAGE [None]
